FAERS Safety Report 9411114 (Version 1)
Quarter: 2013Q3

REPORT INFORMATION
  Report Type: Spontaneous
  Country: FR (occurrence: FR)
  Receive Date: 20130721
  Receipt Date: 20130721
  Transmission Date: 20140515
  Serious: Yes (Other)
  Sender: FDA-Public Use
  Company Number: FR-MYLANLABS-2013S1015344

PATIENT
  Age: 52 Year
  Sex: Male

DRUGS (6)
  1. RITUXIMAB [Suspect]
     Indication: MYASTHENIA GRAVIS
     Dosage: 375MG/M2 INFUSION ON DAYS 1, 15, 45
     Route: 050
  2. PREDNISOLONE [Suspect]
     Indication: MYASTHENIA GRAVIS
     Route: 065
  3. PREDNISOLONE [Suspect]
     Indication: MYASTHENIA GRAVIS
     Dosage: FLUCTUATING BETWEEN 20 AND 40MG FOR 3Y; RECEIVING 40MG ONCE DAILY AT ADR ONSET
     Route: 065
  4. MYCOPHENOLATE MOFETIL [Concomitant]
     Indication: MYASTHENIA GRAVIS
     Dosage: 2G/DAY
     Route: 065
  5. METHOTREXATE [Concomitant]
     Indication: MYASTHENIA GRAVIS
     Dosage: 15MG/WEEK
     Route: 065
  6. AZATHIOPRINE [Concomitant]
     Indication: MYASTHENIA GRAVIS
     Dosage: 150MG/DAY
     Route: 065

REACTIONS (1)
  - Myocardial infarction [Recovering/Resolving]
